FAERS Safety Report 4335697-8 (Version None)
Quarter: 2004Q2

REPORT INFORMATION
  Report Type: 
  Country: None (occurrence: None)
  Receive Date: 20040409
  Receipt Date: 20040227
  Transmission Date: 20050107
  Serious: Yes (Hospitalization)
  Sender: FDA-Public Use
  Company Number: JP-GLAXOSMITHKLINE-B0325120A

PATIENT
  Age: 50 Year
  Sex: Male

DRUGS (10)
  1. FLUTICASONE PROPIONATE [Suspect]
     Indication: ASTHMA
     Dosage: 200MCG TWICE PER DAY
     Route: 055
     Dates: start: 20030811, end: 20040227
  2. THEOPHYLLINE [Suspect]
     Route: 048
  3. SALMETEROL XINAFOATE [Suspect]
     Route: 055
  4. TULOBUTEROL HYDROCHLORIDE [Concomitant]
     Route: 065
  5. DEXTROMETHORPHAN HYDROBROMIDE [Concomitant]
     Route: 048
  6. CARBOCISTEINE [Concomitant]
     Route: 048
  7. GLYCYRRHIZIN [Concomitant]
     Dates: start: 20030804
  8. METHYLPREDNISOLONE SODIUM SUCCINATE [Concomitant]
     Dates: start: 20030804
  9. CLINDAMYCIN PHOSPHATE [Concomitant]
     Dates: start: 20030804
  10. ELECTROLYTE SOLUTION [Concomitant]
     Dates: start: 20030804

REACTIONS (1)
  - EOSINOPHILIC PNEUMONIA [None]
